FAERS Safety Report 4523689-5 (Version None)
Quarter: 2004Q4

REPORT INFORMATION
  Report Type: 
  Country: None (occurrence: None)
  Receive Date: 20041210
  Receipt Date: 20041008
  Transmission Date: 20050328
  Serious: Yes (Death)
  Sender: FDA-Public Use
  Company Number: GB-GLAXOSMITHKLINE-B0347667A

PATIENT
  Age: 20 Year
  Sex: Male
  Weight: 78 kg

DRUGS (3)
  1. LAMOTRIGINE [Suspect]
     Indication: EPILEPSY
     Dosage: 225MG TWICE PER DAY
     Route: 048
     Dates: start: 20021025
  2. KEPPRA [Suspect]
     Indication: EPILEPSY
     Dosage: 500MG TWICE PER DAY
     Route: 048
     Dates: start: 20040121
  3. NO CONCURRENT MEDICATION [Concomitant]

REACTIONS (7)
  - CIRCULATORY COLLAPSE [None]
  - EPILEPSY [None]
  - LARYNGEAL DISORDER [None]
  - MYOCARDIAL ISCHAEMIA [None]
  - MYOCARDITIS [None]
  - PULMONARY CONGESTION [None]
  - SUDDEN DEATH [None]
